FAERS Safety Report 5695013-6 (Version None)
Quarter: 2008Q2

REPORT INFORMATION
  Report Type: 
  Country: None (occurrence: None)
  Receive Date: 20080404
  Receipt Date: 20070911
  Transmission Date: 20081010
  Serious: Yes (Death, Other)
  Sender: FDA-Public Use
  Company Number: FR-PFIZER INC-2007054918

PATIENT
  Sex: Female

DRUGS (7)
  1. LYRICA [Suspect]
     Dates: start: 20070606, end: 20070614
  2. PREVISCAN [Concomitant]
  3. MORPHINE CHLORHYDRATE [Concomitant]
     Route: 058
  4. SOPHIDONE [Concomitant]
     Route: 048
  5. ACTISKENAN [Concomitant]
     Route: 048
  6. LASILIX [Concomitant]
     Route: 048
  7. ALDACTONE [Concomitant]
     Route: 048

REACTIONS (7)
  - CYTOLYTIC HEPATITIS [None]
  - HEPATIC FAILURE [None]
  - MALAISE [None]
  - MULTI-ORGAN FAILURE [None]
  - RENAL FAILURE [None]
  - SHOCK [None]
  - TRANSFUSION REACTION [None]
